FAERS Safety Report 25602130 (Version 1)
Quarter: 2025Q3

REPORT INFORMATION
  Report Type: Spontaneous
  Country: US (occurrence: US)
  Receive Date: 20250724
  Receipt Date: 20250724
  Transmission Date: 20251020
  Serious: Yes (Hospitalization)
  Sender: SINTETICA SA
  Company Number: US-Sintetica SA-2181117

PATIENT
  Age: 55 Year
  Sex: Male
  Weight: 106.6 kg

DRUGS (9)
  1. LIDOCAINE [Suspect]
     Active Substance: LIDOCAINE
     Indication: Induction of anaesthesia
  2. DEXAMETHASONE [Concomitant]
     Active Substance: DEXAMETHASONE
  3. SUCCINYLCHOLINE CHLORIDE [Suspect]
     Active Substance: SUCCINYLCHOLINE CHLORIDE
  4. REMIFENTANIL HYDROCHLORIDE [Suspect]
     Active Substance: REMIFENTANIL HYDROCHLORIDE
  5. PROPOFOL [Suspect]
     Active Substance: PROPOFOL
  6. ISOFLURANE [Suspect]
     Active Substance: ISOFLURANE
  7. FENTANYL [Suspect]
     Active Substance: FENTANYL
  8. DOXAZOSIN [Concomitant]
     Active Substance: DOXAZOSIN MESYLATE
  9. DEXMEDETOMIDINE [Suspect]
     Active Substance: DEXMEDETOMIDINE

REACTIONS (1)
  - Hypotension [Recovered/Resolved]
